FAERS Safety Report 12400639 (Version 2)
Quarter: 2016Q2

REPORT INFORMATION
  Report Type: Spontaneous
  Country: US (occurrence: US)
  Receive Date: 20160525
  Receipt Date: 20160525
  Transmission Date: 20160815
  Serious: Yes (Life-Threatening)
  Sender: FDA-Public Use
  Company Number: US-SA-2015SA163901

PATIENT
  Age: 53 Year
  Sex: Male

DRUGS (5)
  1. LANTUS [Suspect]
     Active Substance: INSULIN GLARGINE
     Indication: TYPE 1 DIABETES MELLITUS
     Dosage: FORM: VIAL DOSE:50 UNIT(S)
     Route: 065
     Dates: start: 200610
  2. LANTUS [Suspect]
     Active Substance: INSULIN GLARGINE
     Indication: TYPE 1 DIABETES MELLITUS
     Dosage: DOSE: 55 U QAM AND 15 U QHS?FORM:VIALS
     Route: 065
     Dates: start: 201504
  3. NOVOLOG [Suspect]
     Active Substance: INSULIN ASPART
     Dosage: FORM: VIAL
     Route: 065
  4. LANTUS [Suspect]
     Active Substance: INSULIN GLARGINE
     Indication: TYPE 1 DIABETES MELLITUS
     Dosage: DOSE: 55 U QAM AND 15 U QHS?FORM:VIALS
     Route: 065
     Dates: start: 201504
  5. NOVOLOG [Suspect]
     Active Substance: INSULIN ASPART
     Dosage: FORM: VIAL
     Route: 065

REACTIONS (5)
  - Blood glucose increased [Unknown]
  - Blood glucose decreased [Unknown]
  - Overdose [Unknown]
  - Drug administration error [Unknown]
  - Incorrect product storage [Unknown]

NARRATIVE: CASE EVENT DATE: 201504
